FAERS Safety Report 5901390-0 (Version None)
Quarter: 2008Q3

REPORT INFORMATION
  Report Type: 
  Country: None (occurrence: None)
  Receive Date: 20080929
  Receipt Date: 20080909
  Transmission Date: 20090109
  Serious: No
  Sender: FDA-Public Use
  Company Number: GB-BAYER-200812435BNE

PATIENT
  Sex: Female

DRUGS (1)
  1. MIRENA [Suspect]
     Indication: DRUG USE FOR UNKNOWN INDICATION
     Route: 015
     Dates: start: 20080101, end: 20080701

REACTIONS (3)
  - ADVERSE DRUG REACTION [None]
  - ANXIETY [None]
  - DEPRESSED MOOD [None]
